FAERS Safety Report 6568691-7 (Version None)
Quarter: 2010Q1

REPORT INFORMATION
  Report Type: 
  Country: None (occurrence: None)
  Receive Date: 20100203
  Receipt Date: 20100128
  Transmission Date: 20100710
  Serious: Yes (Hospitalization)
  Sender: FDA-Public Use
  Company Number: PHHY2009FR33129

PATIENT
  Sex: Male

DRUGS (10)
  1. VOLTAREN [Interacting]
     Indication: MYALGIA
     Dosage: UNK
     Dates: start: 20090104
  2. BIRODOGYL [Suspect]
     Dosage: UNK
     Dates: start: 20081220, end: 20081226
  3. SPIFEN [Interacting]
     Dosage: UNK
     Dates: start: 20081220, end: 20081226
  4. KARDEGIC [Interacting]
     Dosage: 75MG PER DAY
     Dates: start: 20000101, end: 20090106
  5. KARDEGIC [Interacting]
     Dosage: 75MG PER DAY
     Dates: start: 20090108
  6. LEVOTHYROXINE SODIUM [Concomitant]
     Dosage: 200 UG, QD
     Dates: start: 20000101
  7. MEDIATOR [Concomitant]
     Dosage: 150 MG, TID
     Dates: start: 20000101
  8. TENORDATE [Concomitant]
     Dosage: 2 DF, UNK
     Dates: start: 20000101
  9. OMACOR [Concomitant]
     Dosage: UNK
     Dates: start: 20000101
  10. INEGY [Concomitant]
     Dosage: UNK
     Dates: start: 20080501

REACTIONS (7)
  - ASTHENIA [None]
  - ECCHYMOSIS [None]
  - EPISTAXIS [None]
  - HYPERGAMMAGLOBULINAEMIA [None]
  - IDIOPATHIC THROMBOCYTOPENIC PURPURA [None]
  - LYMPHOCYTE COUNT DECREASED [None]
  - PAIN IN EXTREMITY [None]
